FAERS Safety Report 5496458-X (Version None)
Quarter: 2007Q4

REPORT INFORMATION
  Report Type: 
  Country: None (occurrence: None)
  Receive Date: 20071025
  Receipt Date: 20071015
  Transmission Date: 20080405
  Serious: Yes (Death)
  Sender: FDA-Public Use
  Company Number: FR-ELI_LILLY_AND_COMPANY-FR200710003776

PATIENT
  Sex: Female

DRUGS (1)
  1. FORTEO [Suspect]
     Route: 058
     Dates: start: 20041001

REACTIONS (1)
  - HERNIAL EVENTRATION [None]
